FAERS Safety Report 14913585 (Version 1)
Quarter: 2018Q2

REPORT INFORMATION
  Report Type: Spontaneous
  Country: IN (occurrence: IN)
  Receive Date: 20180518
  Receipt Date: 20180518
  Transmission Date: 20180711
  Serious: Yes (Other)
  Sender: FDA-Public Use
  Company Number: IN-JUBILANT CADISTA PHARMACEUTICALS-2018JUB00186

PATIENT
  Age: 58 Year
  Sex: Male

DRUGS (4)
  1. ACETAZOLAMIDE. [Suspect]
     Active Substance: ACETAZOLAMIDE
     Indication: INTRAOCULAR PRESSURE INCREASED
     Dosage: 250 MG, TWICE
     Route: 065
  2. UNSPECIFIED ANTIHYPERTENSIVE DRUGS [Concomitant]
     Indication: HYPERTENSION
     Route: 065
  3. HYDROCHLOROTHIAZIDE. [Suspect]
     Active Substance: HYDROCHLOROTHIAZIDE
     Indication: HYPERTENSION
     Route: 048
  4. UNSPECIFIED DIABETIC DRUG(S) [Concomitant]
     Indication: DIABETES MELLITUS
     Route: 065

REACTIONS (3)
  - Choroidal effusion [Recovered/Resolved]
  - Angle closure glaucoma [Recovered/Resolved]
  - Choroidal detachment [Recovered/Resolved]
